FAERS Safety Report 6248085-4 (Version None)
Quarter: 2009Q2

REPORT INFORMATION
  Report Type: 
  Country: None (occurrence: None)
  Receive Date: 20090629
  Receipt Date: 20080418
  Transmission Date: 20091009
  Serious: Yes (Other)
  Sender: FDA-Public Use
  Company Number: US-ASTRAZENECA-2007UW12030

PATIENT
  Age: 20583 Day
  Sex: Female
  Weight: 108.2 kg

DRUGS (3)
  1. SEROQUEL [Suspect]
     Indication: SLEEP DISORDER
     Dosage: 25-300 MG (FLUACTUATING) AT NIGHT
     Route: 048
     Dates: start: 20030314
  2. SEROQUEL [Suspect]
     Dosage: 300 MG TO 400 MG PER DAY
     Route: 048
     Dates: start: 20031001
  3. LEXAPRO [Concomitant]
     Route: 048
     Dates: start: 20030314

REACTIONS (4)
  - DIABETES MELLITUS [None]
  - HYPERGLYCAEMIA [None]
  - NEUROPATHY PERIPHERAL [None]
  - TYPE 2 DIABETES MELLITUS [None]
